FAERS Safety Report 14348591 (Version 1)
Quarter: 2018Q1

REPORT INFORMATION
  Report Type: Spontaneous
  Country: US (occurrence: US)
  Receive Date: 20180103
  Receipt Date: 20180103
  Transmission Date: 20180509
  Serious: No
  Sender: FDA-Public Use
  Company Number: US-B.I. PHARMACEUTICALS,INC./RIDGEFIELD-2017-BI-069317

PATIENT
  Sex: Male

DRUGS (2)
  1. COMBIVENT [Suspect]
     Active Substance: ALBUTEROL SULFATE\IPRATROPIUM BROMIDE
     Indication: CHRONIC OBSTRUCTIVE PULMONARY DISEASE
  2. COMBIVENT [Suspect]
     Active Substance: ALBUTEROL SULFATE\IPRATROPIUM BROMIDE
     Indication: EMPHYSEMA
     Dosage: FORM STRENGTH: 20 MCG / 100 MCG
     Route: 055

REACTIONS (10)
  - Intraocular pressure increased [Unknown]
  - Vision blurred [Unknown]
  - Angina pectoris [Unknown]
  - Dry mouth [Unknown]
  - Hypertension [Unknown]
  - Dry throat [Unknown]
  - Urinary retention [Unknown]
  - Tachycardia [Unknown]
  - Tremor [Unknown]
  - Medication error [Unknown]
